FAERS Safety Report 4622252-5 (Version None)
Quarter: 2005Q1

REPORT INFORMATION
  Report Type: 
  Country: None (occurrence: None)
  Receive Date: 20050324
  Receipt Date: 20050324
  Transmission Date: 20050727
  Serious: No
  Sender: FDA-Public Use
  Company Number: None

PATIENT
  Sex: Female
  Weight: 54 kg

DRUGS (6)
  1. DIGOXIN [Suspect]
     Indication: ATRIAL FIBRILLATION
     Dosage: 0.25MG Q4H IV
     Route: 042
     Dates: start: 20041212, end: 20041213
  2. QUININE 325MG CAP [Suspect]
     Dosage: 650MG QAM AND HS PO
     Route: 048
     Dates: start: 20041211, end: 20041213
  3. VOSPIRE [Concomitant]
  4. SYNTHROID [Concomitant]
  5. ATIVAN [Concomitant]
  6. REGLAN [Concomitant]

REACTIONS (2)
  - DRUG INTERACTION [None]
  - THERAPEUTIC AGENT TOXICITY [None]
